FAERS Safety Report 18612623 (Version 2)
Quarter: 2020Q4

REPORT INFORMATION
  Report Type: Spontaneous
  Country: US (occurrence: US)
  Receive Date: 20201214
  Receipt Date: 20201215
  Transmission Date: 20210114
  Serious: Yes (Hospitalization)
  Sender: FDA-Public Use
  Company Number: US-ELI_LILLY_AND_COMPANY-US202012001688

PATIENT
  Age: 13 Year
  Sex: Female
  Weight: 95.6 kg

DRUGS (1)
  1. BAMLANIVIMAB. [Suspect]
     Active Substance: BAMLANIVIMAB
     Indication: COVID-19
     Dosage: 700 MG, SINGLE
     Route: 042
     Dates: start: 20201114, end: 20201114

REACTIONS (4)
  - Dyspnoea [Unknown]
  - Chest pain [Unknown]
  - Infusion related reaction [Unknown]
  - Eye pain [Unknown]

NARRATIVE: CASE EVENT DATE: 20201114
